FAERS Safety Report 9924386 (Version 1)
Quarter: 2014Q1

REPORT INFORMATION
  Report Type: Spontaneous
  Country: US (occurrence: US)
  Receive Date: 20140226
  Receipt Date: 20140226
  Transmission Date: 20141002
  Serious: No
  Sender: FDA-Public Use
  Company Number: US-009507513-1402USA008489

PATIENT
  Age: 27 Year
  Sex: Female
  Weight: 76.19 kg

DRUGS (1)
  1. NUVARING [Suspect]
     Dosage: 3 WEEKS IN 1 WEEK OUT
     Route: 067
     Dates: start: 2009

REACTIONS (3)
  - Incorrect drug administration duration [Unknown]
  - Inappropriate schedule of drug administration [Unknown]
  - Metrorrhagia [Not Recovered/Not Resolved]
